FAERS Safety Report 6731160-5 (Version None)
Quarter: 2010Q2

REPORT INFORMATION
  Report Type: 
  Country: None (occurrence: None)
  Receive Date: 20100518
  Receipt Date: 20100511
  Transmission Date: 20101027
  Serious: Yes (Other)
  Sender: FDA-Public Use
  Company Number: US-B.I. PHARMACEUTICALS,INC./RIDGEFIELD-2010-BP-02287BP

PATIENT
  Age: 69 Year
  Sex: Female

DRUGS (23)
  1. CATAPRES-TTS-1 [Suspect]
     Indication: MALIGNANT HYPERTENSION
     Dosage: 0.1 MG
     Route: 062
     Dates: start: 20100203, end: 20100225
  2. CLONIDINE HCL [Suspect]
     Indication: HYPERTENSION
     Dosage: PRN BP }200/100
     Dates: start: 20100201
  3. TRANDATE [Concomitant]
  4. TORSEMIDE [Concomitant]
     Dosage: 2.5-5.0 MG/DAY
  5. GLUCOPHAGE XR [Concomitant]
     Dosage: 2000 MG
  6. VYTORIN [Concomitant]
     Dosage: 10/20; 1 DAILY
  7. XANAX [Concomitant]
     Dosage: 1 TAB 2-3 TIMES DAILY PRN CAN TAKE 1/2
  8. NITROSTAT [Concomitant]
     Indication: ANGINA PECTORIS
     Dosage: AS DIRECTED, ANGINA PAIN PRN
  9. FOLIC ACID [Concomitant]
     Dosage: 1 MG
  10. OXYCODONE [Concomitant]
     Indication: FIBROMYALGIA
     Dosage: 5/650
  11. OXYCODONE [Concomitant]
     Indication: BACK PAIN
     Dosage: Q6HRS PRN
     Route: 048
  12. LOMOTIL [Concomitant]
     Indication: DIARRHOEA
     Dosage: PRN
  13. NIACIN [Concomitant]
     Indication: DIARRHOEA
     Dosage: 1000 MG
  14. PRILOSEC [Concomitant]
     Indication: DIARRHOEA
     Dosage: 2 TAB PER DAY
  15. ASPIRIN [Concomitant]
     Indication: DIARRHOEA
     Dosage: 81 MG
  16. VITAMIN D AND BIOTIN [Concomitant]
     Dosage: 2 TABS DAILY
  17. VITAMIN D WITH CALCIUM/D [Concomitant]
     Dosage: 1 DAILY
  18. IRON SUPPLEMENT [Concomitant]
     Dosage: 1 DAILY
  19. CLARITIN [Concomitant]
     Indication: HYPERSENSITIVITY
     Dosage: 1 DAILY
  20. CHLOR-TRIMETON [Concomitant]
     Dosage: PRN
  21. AFRIN [Concomitant]
     Dosage: PRN
  22. CLINDAMYCIN [Concomitant]
     Dosage: 1 HOUR PRIOR TO DENTAL APPT
  23. PHENERGAN [Concomitant]
     Indication: NAUSEA
     Dosage: Q 4-6 HRS PRN

REACTIONS (7)
  - APPLICATION SITE RASH [None]
  - BLOOD PRESSURE INADEQUATELY CONTROLLED [None]
  - FALL [None]
  - GAIT DISTURBANCE [None]
  - HYPERTENSION [None]
  - OEDEMA PERIPHERAL [None]
  - WRIST FRACTURE [None]
